FAERS Safety Report 5307342-6 (Version None)
Quarter: 2007Q2

REPORT INFORMATION
  Report Type: 
  Country: None (occurrence: None)
  Receive Date: 20070425
  Receipt Date: 20070416
  Transmission Date: 20071010
  Serious: Yes (Life-Threatening, Hospitalization, Disabling)
  Sender: FDA-Public Use
  Company Number: US-MERCK-0704USA01302

PATIENT
  Sex: Female

DRUGS (2)
  1. PEPCID [Suspect]
     Route: 048
     Dates: start: 20041102
  2. REGLAN [Concomitant]
     Route: 065
     Dates: start: 20041102

REACTIONS (7)
  - ACUTE MYOCARDIAL INFARCTION [None]
  - APNOEA [None]
  - CARDIOGENIC SHOCK [None]
  - HYPERSENSITIVITY [None]
  - HYPOTENSION [None]
  - SEPSIS [None]
  - UNRESPONSIVE TO STIMULI [None]
